FAERS Safety Report 15099208 (Version 1)
Quarter: 2018Q3

REPORT INFORMATION
  Report Type: Spontaneous
  Country: US (occurrence: US)
  Receive Date: 20180702
  Receipt Date: 20180702
  Transmission Date: 20181010
  Serious: No
  Sender: FDA-Public Use
  Company Number: US-TEVA-2018-US-917248

PATIENT
  Age: 83 Year
  Sex: Female

DRUGS (2)
  1. CROMOLYN SODIUM. [Suspect]
     Active Substance: CROMOLYN SODIUM
     Indication: ASTHMA
     Route: 065
     Dates: start: 2008, end: 201711
  2. CROMOGLICIC ACID [Suspect]
     Active Substance: CROMOLYN
     Indication: ASTHMA
     Route: 065

REACTIONS (2)
  - Heart rate increased [Unknown]
  - Product availability issue [Unknown]

NARRATIVE: CASE EVENT DATE: 201711
